FAERS Safety Report 8251191-6 (Version None)
Quarter: 2012Q2

REPORT INFORMATION
  Report Type: 
  Country: None (occurrence: None)
  Receive Date: 20120402
  Receipt Date: 20120322
  Transmission Date: 20120825
  Serious: Yes (Hospitalization)
  Sender: FDA-Public Use
  Company Number: CG-MERCK-1203USA03430

PATIENT
  Age: 65 Year
  Sex: Female
  Weight: 55 kg

DRUGS (1)
  1. STROMECTOL [Suspect]
     Indication: ONCHOCERCIASIS
     Route: 048
     Dates: start: 20111214

REACTIONS (9)
  - HEADACHE [None]
  - ASTHENIA [None]
  - BLOOD PRESSURE ABNORMAL [None]
  - HEMIPLEGIA [None]
  - COMA SCALE ABNORMAL [None]
  - PYREXIA [None]
  - NERVOUS SYSTEM DISORDER [None]
  - BODY HEIGHT ABNORMAL [None]
  - APHASIA [None]
